FAERS Safety Report 8058143-X (Version None)
Quarter: 2012Q1

REPORT INFORMATION
  Report Type: 
  Country: None (occurrence: None)
  Receive Date: 20120113
  Receipt Date: 20120105
  Transmission Date: 20120608
  Serious: No
  Sender: FDA-Public Use
  Company Number: 2011SP004653

PATIENT
  Age: 20 Year
  Sex: Female

DRUGS (3)
  1. ROZEREM [Concomitant]
  2. MIRTAZAPINE [Suspect]
     Indication: DEPRESSION
     Dosage: 7.5 MG;QD;PO, 15 MG;QD;PO
     Route: 048
     Dates: start: 20101110, end: 20101205
  3. MIRTAZAPINE [Suspect]
     Indication: DEPRESSION
     Dosage: 7.5 MG;QD;PO, 15 MG;QD;PO
     Route: 048
     Dates: start: 20101105, end: 20101109

REACTIONS (4)
  - TREMOR [None]
  - FALL [None]
  - DYSPNOEA [None]
  - LIVER FUNCTION TEST ABNORMAL [None]
